FAERS Safety Report 15686074 (Version 2)
Quarter: 2019Q2

REPORT INFORMATION
  Report Type: Spontaneous
  Country: US (occurrence: US)
  Receive Date: 20181204
  Receipt Date: 20190409
  Transmission Date: 20190711
  Serious: Yes (Other)
  Sender: FDA-Public Use
  Company Number: US-SA-2018SA326933

PATIENT
  Age: 43 Year
  Sex: Female
  Weight: 77 kg

DRUGS (9)
  1. ADRIAMYCIN [Concomitant]
     Active Substance: DOXORUBICIN HYDROCHLORIDE
     Dosage: UNK UNK, UNK
     Route: 065
  2. TAXOTERE [Suspect]
     Active Substance: DOCETAXEL
     Dosage: UNK
     Route: 042
     Dates: start: 20040331, end: 20040331
  3. AMBIEN [Concomitant]
     Active Substance: ZOLPIDEM TARTRATE
     Dosage: UNK UNK, UNK
     Route: 065
     Dates: start: 200001, end: 200712
  4. FLEXERIL [CEFIXIME] [Concomitant]
     Active Substance: CEFIXIME
     Dosage: UNK UNK, UNK
     Route: 065
     Dates: start: 20030913
  5. NEOSAR [Concomitant]
     Active Substance: CYCLOPHOSPHAMIDE
     Dosage: UNK UNK, UNK
     Route: 065
  6. TYLOX [Concomitant]
     Active Substance: ACETAMINOPHEN\OXYCODONE HYDROCHLORIDE
     Dosage: UNK UNK, UNK
     Route: 065
     Dates: start: 200001, end: 200712
  7. TAXOTERE [Suspect]
     Active Substance: DOCETAXEL
     Indication: BREAST CANCER FEMALE
     Dosage: UNK UNK, Q3W
     Route: 042
     Dates: start: 20031003, end: 20031003
  8. IMITREX [Concomitant]
     Active Substance: SUMATRIPTAN SUCCINATE
     Dosage: UNK UNK, UNK
     Route: 065
     Dates: start: 200001, end: 200712
  9. FAMOTIDINE. [Concomitant]
     Active Substance: FAMOTIDINE
     Dosage: UNK
     Dates: start: 200001, end: 200712

REACTIONS (3)
  - Anxiety [Unknown]
  - Emotional distress [Unknown]
  - Alopecia [Not Recovered/Not Resolved]

NARRATIVE: CASE EVENT DATE: 200409
